FAERS Safety Report 25766251 (Version 1)
Quarter: 2025Q3

REPORT INFORMATION
  Report Type: Spontaneous
  Country: CA (occurrence: CA)
  Receive Date: 20250905
  Receipt Date: 20250905
  Transmission Date: 20251021
  Serious: Yes (Hospitalization)
  Sender: PHARMACOSMOS A/S
  Company Number: CA-NEBO-705277

PATIENT
  Age: 83 Year
  Sex: Female

DRUGS (2)
  1. MONOFERRIC [Suspect]
     Active Substance: FERRIC DERISOMALTOSE
     Indication: Anaemia
     Dates: start: 20250815
  2. MONOFERRIC [Suspect]
     Active Substance: FERRIC DERISOMALTOSE
     Indication: Fatigue
     Dates: start: 20250815

REACTIONS (4)
  - Fall [Unknown]
  - Dermatitis [Unknown]
  - Dizziness [Unknown]
  - Nausea [Unknown]
